FAERS Safety Report 5136029-8 (Version None)
Quarter: 2006Q4

REPORT INFORMATION
  Report Type: 
  Country: None (occurrence: None)
  Receive Date: 20061020
  Receipt Date: 20061004
  Transmission Date: 20070319
  Serious: Yes (Other)
  Sender: FDA-Public Use
  Company Number: 2006BL005871

PATIENT
  Age: 24 Year
  Sex: Male

DRUGS (3)
  1. PREDNISOLONE SODIUM PHOSPHATE [Suspect]
     Indication: RENAL TRANSPLANT
     Dosage: SEE IMAGE
     Dates: end: 20020101
  2. PREDNISOLONE SODIUM PHOSPHATE [Suspect]
     Indication: RENAL TRANSPLANT
     Dosage: SEE IMAGE
     Dates: start: 20020101
  3. CYCLOSPORINE [Suspect]
     Indication: RENAL TRANSPLANT
     Dosage: 75 MILLIGRAMS;DAILY
     Dates: end: 20020101

REACTIONS (1)
  - LYMPHOPROLIFERATIVE DISORDER [None]
